FAERS Safety Report 7485498-7 (Version None)
Quarter: 2011Q2

REPORT INFORMATION
  Report Type: 
  Country: None (occurrence: None)
  Receive Date: 20110516
  Receipt Date: 20110516
  Transmission Date: 20111010
  Serious: Yes (Other)
  Sender: FDA-Public Use
  Company Number: None

PATIENT
  Sex: Female
  Weight: 88.4514 kg

DRUGS (1)
  1. PROAIR HFA [Suspect]
     Indication: DYSPNOEA
     Dosage: METERED INHALATION 2 SPRAY EVERY 4 HR PO
     Route: 048
     Dates: start: 20110422, end: 20110513

REACTIONS (4)
  - DRUG INEFFECTIVE [None]
  - INCORRECT DOSE ADMINISTERED [None]
  - DEVICE MALFUNCTION [None]
  - PRODUCT SUBSTITUTION ISSUE [None]
